FAERS Safety Report 9472542 (Version 2)
Quarter: 2013Q4

REPORT INFORMATION
  Report Type: Spontaneous
  Country: FR (occurrence: FR)
  Receive Date: 20130823
  Receipt Date: 20131216
  Transmission Date: 20140711
  Serious: Yes (Hospitalization)
  Sender: FDA-Public Use
  Company Number: FR-PFIZER INC-2013239615

PATIENT
  Age: 70 Year
  Sex: Female

DRUGS (2)
  1. XALKORI [Suspect]
     Indication: METASTATIC BRONCHIAL CARCINOMA
     Dosage: 250 MG, 2X/DAY
     Route: 048
     Dates: start: 20130613, end: 20130618
  2. XALKORI [Suspect]
     Dosage: UNK
     Dates: start: 20130702

REACTIONS (2)
  - Chondrocalcinosis [Recovered/Resolved]
  - Oesophageal disorder [Recovered/Resolved]
